FAERS Safety Report 6132360-8 (Version None)
Quarter: 2009Q1

REPORT INFORMATION
  Report Type: 
  Country: None (occurrence: None)
  Receive Date: 20090324
  Receipt Date: 20090310
  Transmission Date: 20090719
  Serious: Yes (Hospitalization)
  Sender: FDA-Public Use
  Company Number: 2009030035

PATIENT
  Age: 84 Year
  Sex: Male
  Weight: 82 kg

DRUGS (7)
  1. TORSEMIDE [Suspect]
     Indication: OEDEMA PERIPHERAL
     Dosage: 10 MG (10 MG, 1IN 1 D), ORAL
     Route: 048
     Dates: end: 20090116
  2. THEOPHYLLINE [Suspect]
     Indication: CHRONIC OBSTRUCTIVE PULMONARY DISEASE
     Dosage: 500 MG (250 MG, 2 IN 1 D), ORAL
     Route: 048
     Dates: start: 19880101
  3. TASMULOSIN [Concomitant]
  4. ISOSORBIDE MONONITRATE [Concomitant]
  5. ALLOPURINOL [Concomitant]
  6. PANTOPRAZOLE SODIUM [Concomitant]
  7. MUCOFALK (PSYLLIUM HYDROPHILIC MUCILLOID) [Concomitant]

REACTIONS (7)
  - ARRHYTHMIA [None]
  - COLITIS [None]
  - DEEP VEIN THROMBOSIS [None]
  - DEHYDRATION [None]
  - DRUG INTERACTION [None]
  - IMPAIRED HEALING [None]
  - PULMONARY EMBOLISM [None]
